FAERS Safety Report 15417644 (Version 1)
Quarter: 2018Q3

REPORT INFORMATION
  Report Type: Spontaneous
  Country: CA (occurrence: CA)
  Receive Date: 20180924
  Receipt Date: 20180924
  Transmission Date: 20181010
  Serious: Yes (Other)
  Sender: FDA-Public Use
  Company Number: PHHY2018CA098409

PATIENT
  Age: 3 Year
  Sex: Male

DRUGS (4)
  1. ACZ885 [Suspect]
     Active Substance: CANAKINUMAB
     Dosage: 150 MG, EVERY 6 WEEKS
     Route: 058
     Dates: end: 201406
  2. ACZ885 [Suspect]
     Active Substance: CANAKINUMAB
     Indication: MUCKLE-WELLS SYNDROME
     Dosage: 50 MG, EVERY 8 WEEKS
     Route: 058
     Dates: start: 201204
  3. ACZ885 [Suspect]
     Active Substance: CANAKINUMAB
     Dosage: 50 MG, EVERY 6 WEEKS
     Route: 058
     Dates: start: 201211
  4. ACZ885 [Suspect]
     Active Substance: CANAKINUMAB
     Dosage: 75 MG, EVERY 6 WEEKS
     Route: 058

REACTIONS (1)
  - Deafness neurosensory [Unknown]
